FAERS Safety Report 10904244 (Version 1)
Quarter: 2015Q1

REPORT INFORMATION
  Report Type: Spontaneous
  Country: US (occurrence: None)
  Receive Date: 20150304
  Receipt Date: 20150304
  Transmission Date: 20150721
  Serious: Yes (Hospitalization)
  Sender: FDA-Public Use
  Company Number: None

PATIENT
  Age: 56 Year
  Sex: Male
  Weight: 106.4 kg

DRUGS (1)
  1. TAMSULOSIN [Suspect]
     Active Substance: TAMSULOSIN
     Dosage: MG PO
     Route: 048
     Dates: start: 20150114, end: 20150224

REACTIONS (2)
  - Fall [None]
  - Syncope [None]

NARRATIVE: CASE EVENT DATE: 20150224
